FAERS Safety Report 16325825 (Version 1)
Quarter: 2019Q2

REPORT INFORMATION
  Report Type: Spontaneous
  Country: SE (occurrence: SE)
  Receive Date: 20190517
  Receipt Date: 20190517
  Transmission Date: 20190711
  Serious: Yes (Death)
  Sender: FDA-Public Use
  Company Number: SE-SA-2019SA131988

PATIENT
  Age: 77 Year
  Sex: Female

DRUGS (7)
  1. MULTAQ [Suspect]
     Active Substance: DRONEDARONE
     Dosage: UNK UNK, UNK
     Route: 065
     Dates: start: 201809, end: 201812
  2. FOLACIN [FOLIC ACID] [Concomitant]
     Active Substance: FOLIC ACID
  3. ELIQUIS [Interacting]
     Active Substance: APIXABAN
     Indication: ATRIAL FIBRILLATION
     Dosage: 10 MG, QD
     Route: 048
     Dates: start: 201709, end: 201904
  4. SIMVASTATIN. [Concomitant]
     Active Substance: SIMVASTATIN
  5. MULTAQ [Interacting]
     Active Substance: DRONEDARONE
     Dosage: UNK
     Route: 065
     Dates: start: 201904
  6. BEHEPAN [CYANOCOBALAMIN] [Concomitant]
  7. METOPROLOL. [Concomitant]
     Active Substance: METOPROLOL

REACTIONS (2)
  - Drug interaction [Fatal]
  - Cerebral haemorrhage [Fatal]

NARRATIVE: CASE EVENT DATE: 201904
